FAERS Safety Report 9871383 (Version 1)
Quarter: 2014Q1

REPORT INFORMATION
  Report Type: Spontaneous
  Country: US (occurrence: US)
  Receive Date: 20140205
  Receipt Date: 20140205
  Transmission Date: 20141002
  Serious: No
  Sender: FDA-Public Use
  Company Number: US-B.I. PHARMACEUTICALS,INC./RIDGEFIELD-2014-BI-04195BP

PATIENT
  Age: 61 Year
  Sex: Female

DRUGS (13)
  1. COMBIVENT [Suspect]
     Indication: CHRONIC OBSTRUCTIVE PULMONARY DISEASE
     Dosage: DOSE PER APPLICATION: 20 MCG / 100 MCG; DAILY DOSE: 60 MCG / 300 MCG
     Route: 055
     Dates: start: 20140107
  2. BUSPIRONE [Concomitant]
     Indication: FIBROMYALGIA
     Dosage: 300 MG
     Route: 048
  3. CYCLOBENZAPRINE [Concomitant]
     Indication: FIBROMYALGIA
     Dosage: 10 MG
     Route: 048
  4. OMEPRAZOLE [Concomitant]
     Indication: GASTROOESOPHAGEAL REFLUX DISEASE
     Dosage: 40 MG
     Route: 048
  5. OMEPRAZOLE [Concomitant]
     Indication: HIATUS HERNIA
  6. CARBETALOL [Concomitant]
     Indication: PALPITATIONS
     Dosage: 25 MG
     Route: 048
  7. TEKTURNA [Concomitant]
     Indication: HYPERTENSION
     Dosage: 150 MG
     Route: 048
  8. CLONIDINE (GENERIC) [Concomitant]
     Indication: HYPERTENSION
     Dosage: 0.3 MG
     Route: 048
  9. ATENOLOL [Concomitant]
     Indication: HYPERTENSION
     Dosage: 25 MG
     Route: 048
  10. ATENOLOL [Concomitant]
     Indication: PALPITATIONS
  11. LOSARTAN [Concomitant]
     Indication: HYPERTENSION
     Dosage: 100 MG
     Route: 048
  12. INTEGRA [Concomitant]
     Indication: ANAEMIA
     Route: 048
  13. VITAMIN D [Concomitant]
     Indication: OSTEOPENIA
     Dosage: 1000 U
     Route: 048

REACTIONS (1)
  - Rectal haemorrhage [Not Recovered/Not Resolved]
